FAERS Safety Report 6376876-8 (Version None)
Quarter: 2009Q3

REPORT INFORMATION
  Report Type: 
  Country: None (occurrence: None)
  Receive Date: 20090925
  Receipt Date: 20090423
  Transmission Date: 20100115
  Serious: No
  Sender: FDA-Public Use
  Company Number: US-BAYER-200913771NA

PATIENT
  Age: 32 Year
  Sex: Female

DRUGS (2)
  1. MIRENA [Suspect]
     Indication: VAGINAL HAEMORRHAGE
     Dosage: CONTINUOUS
     Route: 015
     Dates: start: 20080223, end: 20090223
  2. MIRENA [Suspect]
     Route: 015
     Dates: start: 20090223

REACTIONS (4)
  - AMENORRHOEA [None]
  - DYSPAREUNIA [None]
  - IUCD COMPLICATION [None]
  - VAGINAL HAEMORRHAGE [None]
